FAERS Safety Report 10287644 (Version 2)
Quarter: 2014Q3

REPORT INFORMATION
  Report Type: Spontaneous
  Country: None (occurrence: US)
  Receive Date: 20140709
  Receipt Date: 20140811
  Transmission Date: 20150326
  Serious: Yes (Hospitalization, Other)
  Sender: FDA-Public Use
  Company Number: US-TEVA-492457USA

PATIENT
  Age: 66 Year
  Sex: Female

DRUGS (22)
  1. CALTRATE 600 + D3 600 MG [Concomitant]
     Dosage: 2 TABLET DAILY; (1500 MG) AND 400 IU TAB
     Route: 048
  2. VITAMIN D3 [Concomitant]
     Active Substance: CHOLECALCIFEROL
  3. FERROUS SULFATE [Concomitant]
     Active Substance: FERROUS SULFATE\FERROUS SULFATE, DRIED
     Dosage: 325 MILLIGRAM DAILY; (65 MG IRON) TAB, DELAYED RELEASE
     Route: 048
  4. ALPRAZOLAM. [Concomitant]
     Active Substance: ALPRAZOLAM
     Dosage: .5 MILLIGRAM DAILY;
     Route: 048
  5. AVONEX [Concomitant]
     Active Substance: INTERFERON BETA-1A
     Dosage: 4.2857 MICROGRAM DAILY;
     Route: 030
     Dates: start: 2002, end: 201406
  6. AVONEX [Concomitant]
     Active Substance: INTERFERON BETA-1A
     Dosage: 4.2857 MICROGRAM DAILY;
     Route: 030
     Dates: start: 20001222
  7. PREDNISONE. [Concomitant]
     Active Substance: PREDNISONE
     Dosage: 50 MILLIGRAM DAILY;
     Route: 048
  8. PRAVASTATIN [Concomitant]
     Active Substance: PRAVASTATIN\PRAVASTATIN SODIUM
     Dosage: 20 MILLIGRAM DAILY;
     Route: 048
  9. VESICARE [Concomitant]
     Active Substance: SOLIFENACIN SUCCINATE
     Dosage: 10 MILLIGRAM DAILY;
     Route: 048
  10. LEVOTHYROXINE [Concomitant]
     Active Substance: LEVOTHYROXINE
     Dosage: 75 MICROGRAM DAILY;
     Route: 048
  11. COQ10 [Concomitant]
     Active Substance: UBIDECARENONE
  12. CRANBERRY. [Concomitant]
     Active Substance: CRANBERRY
  13. MULTIVITAMIN [Concomitant]
     Active Substance: VITAMINS
     Dosage: 1 TABLET DAILY;
     Route: 048
  14. BACLOFEN. [Concomitant]
     Active Substance: BACLOFEN
     Dosage: 30 MILLIGRAM DAILY;
     Route: 048
  15. METROGEL [Concomitant]
     Active Substance: METRONIDAZOLE
     Dosage: 1 PERCENT DAILY; APPLY TOP QD TO THE AFFECTED AREA(S); RUB IN GENTLY AND COMPLETELY
     Route: 061
  16. SPIRIVA [Concomitant]
     Active Substance: TIOTROPIUM BROMIDE MONOHYDRATE
     Dosage: 18 MICROGRAM DAILY;
     Route: 055
  17. NITROFURANTOIN (MACROCRYSTALS) [Concomitant]
     Active Substance: NITROFURANTOIN
     Dosage: 50 MILLIGRAM DAILY;
  18. ALENDRONATE SODIUM. [Concomitant]
     Active Substance: ALENDRONATE SODIUM
     Dosage: 10 MILLIGRAM DAILY;
     Route: 048
  19. ADVAIR DISKUS [Concomitant]
     Active Substance: FLUTICASONE PROPIONATE\SALMETEROL XINAFOATE
     Dosage: 500 MCG-50 MCG/DOSE, INHALE L PUFF INH BID AM AND PM APPROX 12HRS APART
     Route: 055
  20. PROVENTIL [Concomitant]
     Active Substance: ALBUTEROL
     Indication: DYSPNOEA
     Dosage: ACTUATION AEROSOL INHALER (INHALE 2 PUFF(S) BY INH Q 4-6 HRS
     Route: 055
  21. COPAXONE [Suspect]
     Active Substance: GLATIRAMER ACETATE
     Indication: MULTIPLE SCLEROSIS
     Dosage: UNKNOWN
     Route: 065
  22. AVONEX [Concomitant]
     Active Substance: INTERFERON BETA-1A
     Indication: MULTIPLE SCLEROSIS
     Dosage: 4.2857 MICROGRAM DAILY;
     Route: 030
     Dates: start: 201406

REACTIONS (2)
  - Drug hypersensitivity [Unknown]
  - Colon cancer [Recovered/Resolved]

NARRATIVE: CASE EVENT DATE: 20130903
